FAERS Safety Report 4271808-0 (Version None)
Quarter: 2004Q1

REPORT INFORMATION
  Report Type: 
  Country: None (occurrence: None)
  Receive Date: 20040115
  Receipt Date: 20040113
  Transmission Date: 20041129
  Serious: Yes (Hospitalization)
  Sender: FDA-Public Use
  Company Number: DE-GLAXOSMITHKLINE-D0042878A

PATIENT
  Age: 80 Year
  Sex: Male
  Weight: 82 kg

DRUGS (5)
  1. VIANI [Suspect]
     Indication: CHRONIC OBSTRUCTIVE AIRWAYS DISEASE
     Dosage: 1BLS TWICE PER DAY
     Route: 055
     Dates: start: 20011220
  2. ALLOPURINOL [Suspect]
     Indication: HYPERURICAEMIA
     Dosage: 1TAB PER DAY
     Route: 048
     Dates: start: 20011205
  3. AQUARETIC [Suspect]
     Indication: HYPERTENSION
     Dosage: 1TAB PER DAY
     Route: 048
  4. PLASTULEN [Suspect]
     Indication: IRON DEFICIENCY
     Dosage: 1TAB PER DAY
     Route: 048
     Dates: start: 20011220
  5. ZOLPIDEM TARTRATE [Suspect]
     Indication: SLEEP DISORDER
     Dosage: .5TAB AT NIGHT
     Route: 048
     Dates: start: 20011220

REACTIONS (7)
  - BLISTER [None]
  - CONJUNCTIVITIS [None]
  - EXANTHEM [None]
  - EYE REDNESS [None]
  - PRURITUS [None]
  - STEVENS-JOHNSON SYNDROME [None]
  - TOXIC EPIDERMAL NECROLYSIS [None]
